FAERS Safety Report 9791154 (Version 2)
Quarter: 2014Q2

REPORT INFORMATION
  Report Type: Report from Study
  Country: NL (occurrence: NL)
  Receive Date: 20131231
  Receipt Date: 20140623
  Transmission Date: 20141212
  Serious: Yes (Hospitalization)
  Sender: FDA-Public Use
  Company Number: NL-ABBVIE-13P-114-1184006-00

PATIENT
  Sex: Female
  Weight: 76 kg

DRUGS (1)
  1. LUCRIN [Suspect]
     Indication: ENDOMETRIOSIS
     Route: 058
     Dates: start: 20131029, end: 20131030

REACTIONS (1)
  - Surgery [Recovered/Resolved]
